FAERS Safety Report 8009572-1 (Version None)
Quarter: 2011Q4

REPORT INFORMATION
  Report Type: 
  Country: None (occurrence: None)
  Receive Date: 20111228
  Receipt Date: 20111220
  Transmission Date: 20120403
  Serious: Yes (Other)
  Sender: FDA-Public Use
  Company Number: CH-BRISTOL-MYERS SQUIBB COMPANY-16304727

PATIENT
  Age: 42 Year
  Sex: Female

DRUGS (5)
  1. METHOTREXATE [Suspect]
  2. CALPEROS [Concomitant]
     Dosage: 1DF:1TAB
  3. ORENCIA [Suspect]
     Indication: RHEUMATOID ARTHRITIS
     Dosage: LAST DOSE:31OCT2011
     Route: 042
     Dates: start: 20110706
  4. LEUCOVORIN CALCIUM [Concomitant]
  5. CELEBREX [Concomitant]
     Dosage: TABS

REACTIONS (1)
  - THROMBOCYTOPENIA [None]
